FAERS Safety Report 24232633 (Version 2)
Quarter: 2024Q3

REPORT INFORMATION
  Report Type: Spontaneous
  Country: LU (occurrence: LU)
  Receive Date: 20240821
  Receipt Date: 20240917
  Transmission Date: 20241016
  Serious: Yes (Hospitalization)
  Sender: PFIZER
  Company Number: None

PATIENT
  Age: 61 Year
  Sex: Female
  Weight: 59 kg

DRUGS (6)
  1. ZIRABEV [Suspect]
     Active Substance: BEVACIZUMAB-BVZR
     Indication: Ovarian cancer
     Dosage: 4TH COURSE OF CHEMOTHERAPY
     Route: 042
     Dates: start: 20240813, end: 20240813
  2. EMEND [Concomitant]
     Active Substance: APREPITANT
     Indication: Chemotherapy side effect prophylaxis
     Dosage: 4TH COURSE OF CHEMOTHERAPY
     Route: 048
     Dates: start: 20240813, end: 20240813
  3. CARBOPLATIN [Concomitant]
     Active Substance: CARBOPLATIN
     Indication: Ovarian cancer
     Dosage: 4TH COURSE OF CHEMOTHERAPY
     Route: 042
     Dates: start: 20240813, end: 20240813
  4. DEXAMETHASONE [Concomitant]
     Active Substance: DEXAMETHASONE
     Indication: Chemotherapy side effect prophylaxis
     Dosage: 4TH COURSE OF CHEMOTHERAPY
     Route: 042
     Dates: start: 20240813, end: 20240813
  5. GEMCITABINE AB [Concomitant]
     Indication: Ovarian cancer
     Dosage: 4TH COURSE OF CHEMOTHERAPY
     Route: 042
     Dates: start: 20240813, end: 20240813
  6. ONDANSETRON [Concomitant]
     Active Substance: ONDANSETRON
     Indication: Chemotherapy side effect prophylaxis
     Dosage: 4TH COURSE OF CHEMOTHERAPY
     Route: 042
     Dates: start: 20240813, end: 20240813

REACTIONS (1)
  - Paraesthesia [Recovered/Resolved]

NARRATIVE: CASE EVENT DATE: 20240813
